FAERS Safety Report 5530334-9 (Version None)
Quarter: 2007Q4

REPORT INFORMATION
  Report Type: 
  Country: None (occurrence: None)
  Receive Date: 20071127
  Receipt Date: 20071127
  Transmission Date: 20080405
  Serious: Yes (Hospitalization)
  Sender: FDA-Public Use
  Company Number: None

PATIENT
  Age: 63 Year
  Sex: Male
  Weight: 75 kg

DRUGS (17)
  1. LINEZOLID [Suspect]
     Indication: GRAFT INFECTION
     Dosage: 600 M G Q12H IV
     Route: 042
     Dates: start: 20070902, end: 20070908
  2. LINEZOLID [Suspect]
     Indication: STAPHYLOCOCCAL INFECTION
     Dosage: 600 M G Q12H IV
     Route: 042
     Dates: start: 20070902, end: 20070908
  3. VARENICLINE [Concomitant]
  4. WARFARIN SODIUM [Concomitant]
  5. VALSARTAN [Concomitant]
  6. AMPICILLIN AND SULBACTAM [Concomitant]
  7. HEPARIN [Concomitant]
  8. ALBUTEROL [Concomitant]
  9. OXYCODONE AND ACETAMINOPHEN [Concomitant]
  10. ALPRAZOLAM [Concomitant]
  11. AMIODARONE HCL [Concomitant]
  12. CARVEDILOL [Concomitant]
  13. DOPAMINE HCL [Concomitant]
  14. ENOXAPARIN SODIUM [Concomitant]
  15. FAMOTIDINE [Concomitant]
  16. FUROSEMIDE [Concomitant]
  17. FENTANYL [Concomitant]

REACTIONS (1)
  - THROMBOCYTOPENIA [None]
